FAERS Safety Report 5151526-7 (Version None)
Quarter: 2006Q4

REPORT INFORMATION
  Report Type: 
  Country: None (occurrence: None)
  Receive Date: 20061114
  Receipt Date: 20061114
  Transmission Date: 20070319
  Serious: Yes (Hospitalization)
  Sender: FDA-Public Use
  Company Number: None

PATIENT
  Sex: Male
  Weight: 93 kg

DRUGS (4)
  1. NAFCILLIN SODIUM [Suspect]
     Indication: OSTEOMYELITIS
     Dosage: 2G Q4 H IV
     Route: 042
     Dates: start: 20060901, end: 20060924
  2. NAFCILLIN SODIUM [Suspect]
     Indication: OSTEOMYELITIS
     Dates: start: 20060901, end: 20060924
  3. VANCOMYCIN [Suspect]
     Dosage: 1G Q4 H
  4. VANCOMYCIN [Suspect]
     Dosage: 750G Q12 H

REACTIONS (3)
  - DERMATITIS EXFOLIATIVE [None]
  - NEPHRITIS INTERSTITIAL [None]
  - RASH MACULO-PAPULAR [None]
